FAERS Safety Report 6856790-1 (Version None)
Quarter: 2010Q3

REPORT INFORMATION
  Report Type: 
  Country: None (occurrence: None)
  Receive Date: 20100714
  Receipt Date: 20100706
  Transmission Date: 20110219
  Serious: Yes (Congenital Anomaly, Other)
  Sender: FDA-Public Use
  Company Number: RB-12562-2010

PATIENT
  Sex: Female

DRUGS (2)
  1. SUBOXONE [Suspect]
     Indication: DRUG DEPENDENCE
     Dosage: TRANSPLACENTAL
     Route: 064
     Dates: start: 20090901, end: 20090101
  2. SUBOXONE [Suspect]
     Indication: DRUG DEPENDENCE
     Dosage: TRANSPLACENTAL
     Route: 064
     Dates: start: 20090101, end: 20100629

REACTIONS (2)
  - CLEFT PALATE [None]
  - MATERNAL DRUGS AFFECTING FOETUS [None]
